FAERS Safety Report 10726302 (Version 1)
Quarter: 2015Q1

REPORT INFORMATION
  Report Type: Spontaneous
  Country: US (occurrence: US)
  Receive Date: 20150121
  Receipt Date: 20150121
  Transmission Date: 20150721
  Serious: No
  Sender: FDA-Public Use
  Company Number: US-DURATA THERAPEUTICS INTERNATIONAL-US-DUR-14-000197

PATIENT
  Age: 67 Year
  Sex: Female
  Weight: 102.15 kg

DRUGS (18)
  1. SULFAMETHOXAZOLE/TRIMETHOPRIM [Concomitant]
     Active Substance: SULFAMETHOXAZOLE\TRIMETHOPRIM
     Indication: STREPTOCOCCAL INFECTION
  2. DILTIAZEM [Concomitant]
     Active Substance: DILTIAZEM
  3. CEPHALEXIN. [Concomitant]
     Active Substance: CEPHALEXIN
     Indication: STREPTOCOCCAL INFECTION
  4. FUROSEMIDE. [Concomitant]
     Active Substance: FUROSEMIDE
  5. DALVANCE [Suspect]
     Active Substance: DALBAVANCIN
     Indication: STAPHYLOCOCCAL INFECTION
     Route: 041
     Dates: start: 20141003, end: 20141003
  6. DALVANCE [Suspect]
     Active Substance: DALBAVANCIN
     Indication: STREPTOCOCCAL INFECTION
  7. CEPHALEXIN. [Concomitant]
     Active Substance: CEPHALEXIN
     Indication: STAPHYLOCOCCAL INFECTION
  8. XARELTO [Concomitant]
     Active Substance: RIVAROXABAN
  9. ZETIA [Concomitant]
     Active Substance: EZETIMIBE
  10. ATORVASTATIN [Concomitant]
     Active Substance: ATORVASTATIN
  11. CARVEDILOL. [Concomitant]
     Active Substance: CARVEDILOL
  12. CILOSTAZOL. [Concomitant]
     Active Substance: CILOSTAZOL
  13. OMEPRAZOLE. [Concomitant]
     Active Substance: OMEPRAZOLE
  14. ASPIRIN. [Concomitant]
     Active Substance: ASPIRIN
  15. POTASSIUM CITRATE. [Concomitant]
     Active Substance: POTASSIUM CITRATE
     Dosage: 10 MG/MEQ
  16. MELOXICAM. [Concomitant]
     Active Substance: MELOXICAM
  17. SULFAMETHOXAZOLE/TRIMETHOPRIM [Concomitant]
     Active Substance: SULFAMETHOXAZOLE\TRIMETHOPRIM
     Indication: STAPHYLOCOCCAL INFECTION
  18. LORAZEPAM. [Concomitant]
     Active Substance: LORAZEPAM

REACTIONS (1)
  - Diarrhoea [Recovered/Resolved]

NARRATIVE: CASE EVENT DATE: 20141003
